FAERS Safety Report 24005482 (Version 1)
Quarter: 2024Q2

REPORT INFORMATION
  Report Type: Spontaneous
  Country: US (occurrence: None)
  Receive Date: 20240622
  Receipt Date: 20240622
  Transmission Date: 20240715
  Serious: Yes (Hospitalization)
  Sender: FDA-Public Use
  Company Number: None

PATIENT
  Sex: Female
  Weight: 50.3 kg

DRUGS (1)
  1. CISPLATIN [Suspect]
     Active Substance: CISPLATIN
     Dates: start: 20240111, end: 20240215

REACTIONS (6)
  - Dyspnoea [None]
  - Throat tightness [None]
  - Pulmonary congestion [None]
  - Pneumonia [None]
  - Fluid retention [None]
  - Blood pressure fluctuation [None]

NARRATIVE: CASE EVENT DATE: 20240603
